FAERS Safety Report 5523847-7 (Version None)
Quarter: 2007Q4

REPORT INFORMATION
  Report Type: 
  Country: None (occurrence: None)
  Receive Date: 20071121
  Receipt Date: 20071114
  Transmission Date: 20080405
  Serious: Yes (Other)
  Sender: FDA-Public Use
  Company Number: US-ABBOTT-07P-163-0424855-00

PATIENT
  Sex: Male
  Weight: 100 kg

DRUGS (4)
  1. ADVICOR [Suspect]
     Indication: BLOOD CHOLESTEROL INCREASED
     Route: 048
     Dates: start: 20071001, end: 20071101
  2. ADVICOR [Suspect]
     Route: 048
     Dates: start: 20071101, end: 20071113
  3. ACETYLSALICYLIC ACID SRT [Concomitant]
     Indication: PREMEDICATION
     Route: 048
  4. LISINOPRIL [Concomitant]
     Indication: HYPERTENSION
     Route: 048

REACTIONS (5)
  - FLUSHING [None]
  - INTERVERTEBRAL DISC DISORDER [None]
  - INTERVERTEBRAL DISC PROTRUSION [None]
  - NERVE COMPRESSION [None]
  - PAIN [None]
